FAERS Safety Report 18665577 (Version 1)
Quarter: 2020Q4

REPORT INFORMATION
  Report Type: Spontaneous
  Country: US (occurrence: US)
  Receive Date: 20201226
  Receipt Date: 20201226
  Transmission Date: 20210114
  Serious: No
  Sender: FDA-Public Use
  Company Number: US-B.I. PHARMACEUTICALS,INC./RIDGEFIELD-2020-MR-027872

PATIENT
  Age: 60 Year
  Sex: Male

DRUGS (1)
  1. JARDIANCE [Suspect]
     Active Substance: EMPAGLIFLOZIN
     Indication: TYPE 2 DIABETES MELLITUS
     Dosage: 25MG QD
     Dates: start: 202002

REACTIONS (4)
  - Bone pain [Recovered/Resolved]
  - Pollakiuria [Not Recovered/Not Resolved]
  - Arthralgia [Recovered/Resolved]
  - Blood ketone body [Not Recovered/Not Resolved]

NARRATIVE: CASE EVENT DATE: 20200602
